FAERS Safety Report 9518187 (Version 2)
Quarter: 2013Q4

REPORT INFORMATION
  Report Type: Spontaneous
  Country: DE (occurrence: None)
  Receive Date: 20130910
  Receipt Date: 20131211
  Transmission Date: 20140711
  Serious: Yes (Hospitalization)
  Sender: FDA-Public Use
  Company Number: AUR-APL-2013-07348

PATIENT
  Age: 89 Year
  Sex: Male
  Weight: 78 kg

DRUGS (1)
  1. SIMVASTATIN (SIMVASTATIN) [Suspect]
     Indication: CORONARY ARTERY DISEASE
     Route: 048
     Dates: end: 20130724

REACTIONS (3)
  - Blood creatine phosphokinase increased [None]
  - Myoglobin blood increased [None]
  - Mobility decreased [None]
